FAERS Safety Report 7086921-2 (Version None)
Quarter: 2010Q4

REPORT INFORMATION
  Report Type: 
  Country: None (occurrence: None)
  Receive Date: 20101106
  Receipt Date: 20101013
  Transmission Date: 20110411
  Serious: No
  Sender: FDA-Public Use
  Company Number: US-WYE-H17455110

PATIENT
  Sex: Male

DRUGS (1)
  1. PREMARIN [Suspect]
     Indication: DIARRHOEA
     Dosage: 1 GRAM
     Route: 067
     Dates: start: 20100908

REACTIONS (4)
  - BLADDER DISORDER [None]
  - CONDITION AGGRAVATED [None]
  - DRUG INEFFECTIVE [None]
  - OFF LABEL USE [None]
